FAERS Safety Report 22145318 (Version 1)
Quarter: 2023Q1

REPORT INFORMATION
  Report Type: Spontaneous
  Country: NL (occurrence: NL)
  Receive Date: 20230328
  Receipt Date: 20230328
  Transmission Date: 20230418
  Serious: Yes (Other)
  Sender: FDA-Public Use
  Company Number: None

PATIENT
  Sex: Male
  Weight: 105 kg

DRUGS (2)
  1. ENALAPRIL [Suspect]
     Active Substance: ENALAPRIL
     Indication: Hypertension
     Dosage: 10 MCI, QD (1X PER DAG 10 MG)
     Route: 065
  2. ENALAPRIL [Suspect]
     Active Substance: ENALAPRIL
     Dosage: 20 MG, QD (1X PER DAG)
     Route: 065
     Dates: start: 20211013

REACTIONS (4)
  - Arrhythmia [Recovered/Resolved]
  - Rosacea [Not Recovered/Not Resolved]
  - Dysgeusia [Recovering/Resolving]
  - Erythrosis [Not Recovered/Not Resolved]
